FAERS Safety Report 10282734 (Version 1)
Quarter: 2014Q3

REPORT INFORMATION
  Report Type: Spontaneous
  Country: US (occurrence: US)
  Receive Date: 20140708
  Receipt Date: 20140708
  Transmission Date: 20150326
  Serious: No
  Sender: FDA-Public Use
  Company Number: US-009507513-1406USA013064

PATIENT
  Sex: Female

DRUGS (1)
  1. NOROXIN [Suspect]
     Active Substance: NORFLOXACIN
     Indication: CYSTITIS
     Dosage: DOSE/FREQUENCY: 400 MG, ONE HALF TABLET DAILY
     Route: 048
     Dates: start: 2003

REACTIONS (4)
  - Inappropriate schedule of drug administration [Unknown]
  - No adverse event [Unknown]
  - Drug prescribing error [Unknown]
  - Drug administration error [Unknown]

NARRATIVE: CASE EVENT DATE: 2003
